FAERS Safety Report 8520159-4 (Version None)
Quarter: 2012Q3

REPORT INFORMATION
  Report Type: 
  Country: None (occurrence: None)
  Receive Date: 20120705
  Receipt Date: 20120625
  Transmission Date: 20120928
  Serious: Yes (Hospitalization)
  Sender: FDA-Public Use
  Company Number: 2012SP027074

PATIENT
  Age: 52 Year
  Sex: Female

DRUGS (10)
  1. PAROXETINE HCL [Suspect]
     Indication: PRODUCT USED FOR UNKNOWN INDICATION
     Dosage: 1 DF, QD, PO
     Route: 048
     Dates: start: 20120201, end: 20120515
  2. ESCITALOPRAM [Concomitant]
  3. CLOBAZAM [Concomitant]
  4. REBETOL [Suspect]
     Indication: HEPATITIS C
     Dosage: 1000;800 MG, QD
     Dates: start: 20120502
  5. REBETOL [Suspect]
     Indication: HEPATITIS C
     Dosage: 1000;800 MG, QD
     Dates: start: 20120102
  6. IMOVANE [Concomitant]
  7. XANAX [Suspect]
     Indication: PRODUCT USED FOR UNKNOWN INDICATION
     Dosage: 0.50 MG, QD, PO
     Route: 048
     Dates: start: 20120201, end: 20120515
  8. VICTRELIS [Suspect]
     Indication: HEPATITIS C
     Dosage: 800 MG, QD, PO
     Route: 048
     Dates: start: 20120130, end: 20120515
  9. VIRAFERONPEG [Suspect]
     Indication: HEPATITIS C
     Dosage: 100;80 MCG, QW, SC
     Route: 058
     Dates: start: 20120502
  10. VIRAFERONPEG [Suspect]
     Indication: HEPATITIS C
     Dosage: 100;80 MCG, QW, SC
     Route: 058
     Dates: start: 20120102

REACTIONS (11)
  - ECZEMA [None]
  - DYSPNOEA EXERTIONAL [None]
  - SKIN BURNING SENSATION [None]
  - PRURITUS [None]
  - LYMPHADENOPATHY [None]
  - PANCYTOPENIA [None]
  - FACE OEDEMA [None]
  - CONJUNCTIVITIS [None]
  - DERMATITIS EXFOLIATIVE [None]
  - ASTHENIA [None]
  - PYREXIA [None]
